FAERS Safety Report 5507466-4 (Version None)
Quarter: 2007Q4

REPORT INFORMATION
  Report Type: 
  Country: None (occurrence: None)
  Receive Date: 20071102
  Receipt Date: 20071018
  Transmission Date: 20080405
  Serious: Yes (Other)
  Sender: FDA-Public Use
  Company Number: 163027ISR

PATIENT
  Age: 47 Year
  Sex: Female

DRUGS (1)
  1. GABAPENTIN [Suspect]
     Indication: DEPRESSION
     Dosage: 1200 MG (600 MG, IN 1 D), ORAL
     Route: 048

REACTIONS (2)
  - SICK SINUS SYNDROME [None]
  - SINUS ARRHYTHMIA [None]
